FAERS Safety Report 24183766 (Version 2)
Quarter: 2024Q3

REPORT INFORMATION
  Report Type: Spontaneous
  Country: JP (occurrence: JP)
  Receive Date: 20240807
  Receipt Date: 20240917
  Transmission Date: 20241017
  Serious: Yes (Hospitalization, Other)
  Sender: PFIZER
  Company Number: JP-PFIZER INC-PV202400100756

PATIENT
  Age: 30 Year
  Sex: Male
  Weight: 43.4 kg

DRUGS (12)
  1. PAXLOVID [Interacting]
     Active Substance: NIRMATRELVIR\RITONAVIR
     Indication: COVID-19
     Dosage: 0.5 SHEET, 2X/DAY
     Route: 048
     Dates: start: 20240605, end: 20240609
  2. PROGRAF [Interacting]
     Active Substance: TACROLIMUS
     Dosage: 1.6 MG
     Dates: end: 20240610
  3. VONOPRAZAN FUMARATE [Concomitant]
     Active Substance: VONOPRAZAN FUMARATE
     Dosage: UNK
  4. URSODIOL [Concomitant]
     Active Substance: URSODIOL
     Dosage: UNK
  5. FEBUXOSTAT DSEP [Concomitant]
     Dosage: UNK
  6. MIYA-BM [Concomitant]
     Active Substance: CLOSTRIDIUM BUTYRICUM SPORES STRAIN M-55
     Dosage: UNK
  7. SULFAMETHOXAZOLE\TRIMETHOPRIM [Concomitant]
     Active Substance: SULFAMETHOXAZOLE\TRIMETHOPRIM
     Dosage: UNK
  8. BEZAFIBRATE [Concomitant]
     Active Substance: BEZAFIBRATE
     Dosage: UNK
  9. PREDONINE [Concomitant]
     Active Substance: PREDNISOLONE
     Dosage: UNK
  10. IMBRUVICA [Concomitant]
     Active Substance: IBRUTINIB
     Dosage: UNK
  11. CRESEMBA [Concomitant]
     Active Substance: ISAVUCONAZONIUM SULFATE
     Dosage: UNK
  12. VALACICLOVIR SPKK [Concomitant]
     Dosage: UNK

REACTIONS (4)
  - Pancreatitis acute [Unknown]
  - Renal impairment [Recovered/Resolved]
  - Drug interaction [Recovered/Resolved]
  - Drug level increased [Recovered/Resolved]

NARRATIVE: CASE EVENT DATE: 20240610
